FAERS Safety Report 11416072 (Version 1)
Quarter: 2015Q3

REPORT INFORMATION
  Report Type: Spontaneous
  Country: US (occurrence: US)
  Receive Date: 20150825
  Receipt Date: 20150825
  Transmission Date: 20151125
  Serious: No
  Sender: FDA-Public Use
  Company Number: US-TEVA-534530USA

PATIENT
  Age: 79 Year
  Sex: Female

DRUGS (7)
  1. METOPROLOL [Concomitant]
     Active Substance: METOPROLOL
  2. CLONAZEPAM. [Concomitant]
     Active Substance: CLONAZEPAM
  3. FEXOFENADINE [Suspect]
     Active Substance: FEXOFENADINE\FEXOFENADINE HYDROCHLORIDE
     Indication: SEASONAL ALLERGY
     Dosage: 180 MILLIGRAM DAILY;
     Dates: start: 20150106, end: 20150109
  4. PAROXETINE [Concomitant]
     Active Substance: PAROXETINE\PAROXETINE HYDROCHLORIDE
  5. PRAVASTATIN [Concomitant]
     Active Substance: PRAVASTATIN\PRAVASTATIN SODIUM
  6. PRAMIPEXOL [Concomitant]
     Active Substance: PRAMIPEXOLE
  7. LISINOPRIL. [Concomitant]
     Active Substance: LISINOPRIL

REACTIONS (2)
  - Drug ineffective [Unknown]
  - Drug administered to patient of inappropriate age [Unknown]

NARRATIVE: CASE EVENT DATE: 201501
